FAERS Safety Report 24023284 (Version 3)
Quarter: 2024Q3

REPORT INFORMATION
  Report Type: Report from Study
  Country: TR (occurrence: TR)
  Receive Date: 20240627
  Receipt Date: 20240710
  Transmission Date: 20241016
  Serious: No
  Sender: ROCHE
  Company Number: TR-ROCHE-3532252

PATIENT
  Age: 41 Year
  Sex: Male

DRUGS (6)
  1. ALECTINIB [Suspect]
     Active Substance: ALECTINIB
     Indication: Non-small cell lung cancer metastatic
     Dosage: ON 17/MAR/2024, HE RECEIVED MOST RECENT DOSE OF STUDY DRUG PRIOR TO ADVERSE EVENT
     Route: 048
     Dates: start: 20211129
  2. ALECTINIB [Suspect]
     Active Substance: ALECTINIB
     Route: 048
     Dates: start: 20200327
  3. TIPRAXIN [Concomitant]
     Indication: Infection
     Route: 042
     Dates: start: 20240320
  4. OKSAPAR [Concomitant]
     Route: 042
     Dates: start: 20240320
  5. OMESEK [Concomitant]
     Indication: Infection
     Route: 048
     Dates: start: 20240321
  6. PRALAS (TURKEY) [Concomitant]
     Indication: Infection
     Route: 042
     Dates: start: 20240321

REACTIONS (7)
  - Arthralgia [Not Recovered/Not Resolved]
  - Blood phosphorus increased [Recovered/Resolved]
  - C-reactive protein increased [Not Recovered/Not Resolved]
  - Procalcitonin increased [Recovered/Resolved]
  - Blood creatinine increased [Recovered/Resolved]
  - Pneumonia [Not Recovered/Not Resolved]
  - Glomerular filtration rate decreased [Not Recovered/Not Resolved]

NARRATIVE: CASE EVENT DATE: 20240318
